FAERS Safety Report 6344027-1 (Version None)
Quarter: 2009Q3

REPORT INFORMATION
  Report Type: 
  Country: None (occurrence: None)
  Receive Date: 20090908
  Receipt Date: 20090827
  Transmission Date: 20100115
  Serious: Yes (Other)
  Sender: FDA-Public Use
  Company Number: JP-PFIZER INC-2009263183

PATIENT

DRUGS (4)
  1. LIPITOR [Suspect]
     Indication: HYPERLIPIDAEMIA
     Dosage: 10 MG, 1X/DAY
     Route: 048
     Dates: start: 20031107
  2. MYSLEE [Suspect]
     Dosage: 10 MG, 1X/DAY
     Route: 048
     Dates: start: 20050901
  3. AMLODIPINE [Concomitant]
     Dosage: UNK
     Route: 048
     Dates: start: 20080711
  4. NORVASC [Concomitant]
     Dosage: UNK
     Route: 048
     Dates: start: 20040119, end: 20080711

REACTIONS (1)
  - HEMIANOPIA [None]
